FAERS Safety Report 22143502 (Version 1)
Quarter: 2023Q1

REPORT INFORMATION
  Report Type: Spontaneous
  Country: HU (occurrence: HU)
  Receive Date: 20230327
  Receipt Date: 20230327
  Transmission Date: 20230418
  Serious: Yes (Other)
  Sender: FDA-Public Use
  Company Number: HU-002147023-NVSC2023HU056260

PATIENT
  Sex: Female

DRUGS (10)
  1. IMATINIB [Suspect]
     Active Substance: IMATINIB
     Indication: Chronic myeloid leukaemia
     Dosage: 400 MILLIGRAM
     Route: 065
     Dates: start: 202203
  2. IMATINIB [Suspect]
     Active Substance: IMATINIB
     Dosage: 100 MILLIGRAM
     Route: 065
     Dates: start: 202209
  3. RUXOLITINIB [Suspect]
     Active Substance: RUXOLITINIB
     Indication: Polycythaemia vera
     Dosage: 15 MILLIGRAM, QOD
     Route: 065
     Dates: start: 202209
  4. RUXOLITINIB [Suspect]
     Active Substance: RUXOLITINIB
     Dosage: 30 MILLIGRAM, QD (15 MG, BID (2X))
     Route: 065
     Dates: start: 202203
  5. RUXOLITINIB [Suspect]
     Active Substance: RUXOLITINIB
     Dosage: 20 MILLIGRAM, QD (10 MG, BID (2X))
     Route: 065
     Dates: start: 201904
  6. RUXOLITINIB [Suspect]
     Active Substance: RUXOLITINIB
     Dosage: 20 MILLIGRAM, QD (10 MG, BID)
     Route: 065
     Dates: start: 202206
  7. RUXOLITINIB [Suspect]
     Active Substance: RUXOLITINIB
     Dosage: 30 MILLIGRAM, QD (15 MG, BID (2X))
     Route: 065
     Dates: start: 202002
  8. RUXOLITINIB [Suspect]
     Active Substance: RUXOLITINIB
     Dosage: 40 MILLIGRAM, QD (20 MG, BID (2X))
     Route: 065
     Dates: start: 202110
  9. HYDROXYUREA [Concomitant]
     Active Substance: HYDROXYUREA
     Indication: Product used for unknown indication
     Dosage: UNK
     Route: 065
     Dates: start: 202112
  10. THROMBOREDUCTIN [Concomitant]
     Indication: Thrombocytosis
     Dosage: UNK
     Route: 065
     Dates: start: 201706

REACTIONS (7)
  - Chronic myeloid leukaemia [Unknown]
  - Platelet count increased [Recovering/Resolving]
  - Haemoglobin increased [Unknown]
  - White blood cell count increased [Unknown]
  - Blood lactate dehydrogenase increased [Unknown]
  - Blood creatinine increased [Unknown]
  - Anaemia [Recovered/Resolved]

NARRATIVE: CASE EVENT DATE: 20200201
